FAERS Safety Report 24391506 (Version 3)
Quarter: 2024Q4

REPORT INFORMATION
  Report Type: Spontaneous
  Country: US (occurrence: US)
  Receive Date: 20241003
  Receipt Date: 20241022
  Transmission Date: 20250115
  Serious: No
  Sender: SANOFI AVENTIS
  Company Number: US-SA-2024SA282419

PATIENT
  Age: 8 Year
  Sex: Female

DRUGS (5)
  1. TZIELD [Suspect]
     Active Substance: TEPLIZUMAB-MZWV
     Indication: Diabetes prophylaxis
     Dosage: 66.95 UG, 1X
     Route: 065
     Dates: start: 20240909, end: 20240909
  2. TZIELD [Suspect]
     Active Substance: TEPLIZUMAB-MZWV
     Dosage: 128.75 UG, 1X
     Route: 065
     Dates: start: 20240910, end: 20240910
  3. TZIELD [Suspect]
     Active Substance: TEPLIZUMAB-MZWV
     Dosage: 257.5 UG, 1X
     Route: 065
     Dates: start: 20240911, end: 20240911
  4. TZIELD [Suspect]
     Active Substance: TEPLIZUMAB-MZWV
     Dosage: 515 UG, 1X
     Route: 065
     Dates: start: 20240912, end: 20240912
  5. TZIELD [Suspect]
     Active Substance: TEPLIZUMAB-MZWV
     Dosage: 1060.9 UG, 1X
     Route: 065
     Dates: start: 20240913, end: 20240923

REACTIONS (12)
  - Anxiety [Recovered/Resolved]
  - Tremor [Recovered/Resolved]
  - Crying [Recovered/Resolved]
  - Chills [Recovered/Resolved]
  - Insomnia [Recovered/Resolved]
  - Erythema [Recovered/Resolved]
  - Blister [Unknown]
  - Skin swelling [Recovered/Resolved]
  - Liver function test increased [Recovered/Resolved]
  - White blood cell count abnormal [Recovered/Resolved]
  - Pyrexia [Recovered/Resolved]
  - Rash [Recovered/Resolved]

NARRATIVE: CASE EVENT DATE: 20240901
